FAERS Safety Report 8168807-5 (Version None)
Quarter: 2012Q1

REPORT INFORMATION
  Report Type: 
  Country: None (occurrence: None)
  Receive Date: 20120227
  Receipt Date: 20120221
  Transmission Date: 20120608
  Serious: Yes (Hospitalization, Other)
  Sender: FDA-Public Use
  Company Number: US-PURDUE-USA-2012-0082706

PATIENT
  Sex: Male

DRUGS (2)
  1. METHADONE HCL [Suspect]
     Indication: PRODUCT USED FOR UNKNOWN INDICATION
  2. OXYCONTIN [Suspect]
     Indication: PRODUCT USED FOR UNKNOWN INDICATION
     Dosage: 60 MG, Q12H
     Dates: end: 20120208

REACTIONS (4)
  - PNEUMONIA [None]
  - TONSIL CANCER [None]
  - DERMATOFIBROSARCOMA [None]
  - GASTROSTOMY TUBE INSERTION [None]
